FAERS Safety Report 7920542-1 (Version None)
Quarter: 2011Q4

REPORT INFORMATION
  Report Type: 
  Country: None (occurrence: None)
  Receive Date: 20111117
  Receipt Date: 20111111
  Transmission Date: 20120403
  Serious: Yes (Other)
  Sender: FDA-Public Use
  Company Number: PHEH2008US10676

PATIENT
  Sex: Female
  Weight: 56 kg

DRUGS (67)
  1. AREDIA [Suspect]
     Indication: BONE LOSS
     Dosage: UNK UKN, QMO
     Dates: start: 19990101, end: 20000101
  2. AREDIA [Suspect]
     Indication: OSTEOPOROSIS
  3. PROPOXYPHENE HCL AND ACETAMINOPHEN [Concomitant]
     Dosage: 100 MG, UNK
     Route: 048
  4. CYCLOBENZAPRINE [Concomitant]
     Dosage: 10 MG, UNK
     Route: 048
  5. CELEBREX [Concomitant]
     Dosage: 200 MG, UNK
     Route: 048
  6. PAXIL [Concomitant]
     Dosage: 20 MG, UNK
  7. HYDROCORTISONE [Concomitant]
  8. AFRIN                              /00070002/ [Concomitant]
  9. DIFLUCAN [Concomitant]
     Dosage: 100 MG, QD
     Route: 048
  10. AMOXICILLIN [Concomitant]
     Dosage: 500 MG, UNK
     Route: 048
  11. POTASSIUM [Concomitant]
  12. MAGNESIUM [Concomitant]
  13. COUMADIN [Concomitant]
  14. CALCIUM [Concomitant]
  15. DECADRON [Concomitant]
  16. LOVENOX [Concomitant]
  17. NEXIUM [Concomitant]
     Dosage: 40 MG, QD
     Route: 048
  18. ALPRAZOLAM [Concomitant]
     Dosage: .25 MG, UNK
     Route: 048
  19. PERCOCET [Concomitant]
     Dosage: 7.5 MG, UNK
     Route: 048
  20. LORAZEPAM [Concomitant]
     Dosage: 1 MG, UNK
     Route: 048
  21. LEVAQUIN [Concomitant]
     Dosage: 500 MG, UNK
     Route: 048
  22. PREVACID [Concomitant]
  23. CREON [Concomitant]
  24. WELCHOL [Concomitant]
  25. TAMOXIFEN CITRATE [Concomitant]
     Dosage: UNK
     Dates: start: 19990601, end: 20020101
  26. PROMETHAZINE [Concomitant]
  27. PREDNISONE TAB [Concomitant]
  28. PRILOSEC [Concomitant]
     Dosage: AS NEEDED
  29. DILAUDID [Concomitant]
     Dosage: 0.4 MG, PRN
     Route: 042
  30. AUGMENTIN [Concomitant]
     Dosage: 875 MG, TID, PRN
  31. ZOMETA [Suspect]
     Indication: OSTEOPOROSIS
  32. ADIPEX [Concomitant]
     Dosage: 37.5 MG, UNK
     Route: 048
  33. LIPITOR [Concomitant]
     Dosage: 20 MG, UNK
     Route: 048
  34. ARIMIDEX [Concomitant]
  35. SODIUM CHLORIDE [Concomitant]
  36. METOCLOPRAMIDE [Concomitant]
  37. SELENIUM [Concomitant]
  38. CHEMOTHERAPEUTICS NOS [Concomitant]
  39. LORTAB [Concomitant]
  40. VITAMIN TAB [Concomitant]
  41. NAPROXEN [Concomitant]
  42. COLACE [Concomitant]
     Dosage: 100 MG, BID
  43. ZOMETA [Suspect]
     Indication: BONE LOSS
     Dosage: UNK UKN, QMO
     Dates: start: 20000101, end: 20060101
  44. METHYLPREDNISOLONE [Concomitant]
     Dosage: 4 MG, UNK
     Route: 048
  45. POTASSIUM CHLORIDE [Concomitant]
  46. CYTOXAN [Concomitant]
  47. NAPROSYN [Concomitant]
  48. ATRACURIUM [Concomitant]
  49. CALCITONIN SALMON [Concomitant]
  50. OXYCODONE HCL [Concomitant]
     Dosage: 5 MG, PRN
     Route: 048
  51. RANITIDINE [Concomitant]
     Dosage: 150 MG, UNK
     Route: 048
  52. DIPROLENE [Concomitant]
     Dosage: .05 %, UNK
  53. FEMARA [Concomitant]
     Dosage: 2.5 MG, UNK
     Route: 048
  54. PROCRIT                            /00909301/ [Concomitant]
  55. HEPARIN [Concomitant]
  56. KLOR-CON [Concomitant]
     Dosage: 10 MEQ, QID
  57. RETIN-A [Concomitant]
     Dosage: 0.05 %, UNK
     Route: 061
  58. BIAXIN [Concomitant]
     Dosage: 500 MG, UNK
     Route: 048
  59. WARFARIN SODIUM [Concomitant]
     Dosage: 1 MG, UNK
     Route: 048
  60. AROMASIN [Concomitant]
  61. DIGOXIN [Concomitant]
  62. PEPCID [Concomitant]
  63. ACETAMINOPHEN [Concomitant]
  64. ZOFRAN [Concomitant]
     Dosage: 4 MG, Q6H, PRN
     Route: 042
  65. HALOTUSSIN [Concomitant]
     Dosage: UNK UKN, UNK
     Route: 048
  66. AMBIEN [Concomitant]
     Dosage: 10 MG, UNK
     Route: 048
  67. UROCIT-K [Concomitant]

REACTIONS (73)
  - OSTEONECROSIS OF JAW [None]
  - HERPES ZOSTER [None]
  - BONE LESION [None]
  - MUSCULOSKELETAL CHEST PAIN [None]
  - ERYTHEMA [None]
  - ASTHENIA [None]
  - CHRONIC SINUSITIS [None]
  - HYPOGLYCAEMIA [None]
  - WEIGHT DECREASED [None]
  - PROTHROMBIN TIME PROLONGED [None]
  - LUNG INFILTRATION [None]
  - LIPOMA [None]
  - OSTEOMYELITIS [None]
  - ANAEMIA OF MALIGNANT DISEASE [None]
  - HYPOTENSION [None]
  - SPONDYLOLISTHESIS [None]
  - SPINAL FRACTURE [None]
  - BACK PAIN [None]
  - METABOLIC ACIDOSIS [None]
  - ADRENAL INSUFFICIENCY [None]
  - LOBAR PNEUMONIA [None]
  - MALNUTRITION [None]
  - SYNCOPE [None]
  - EXPOSED BONE IN JAW [None]
  - PAIN IN JAW [None]
  - OSTEONECROSIS [None]
  - JOINT EFFUSION [None]
  - GAIT DISTURBANCE [None]
  - LUNG DISORDER [None]
  - BASAL CELL CARCINOMA [None]
  - OSTEOSCLEROSIS [None]
  - INTERVERTEBRAL DISC DEGENERATION [None]
  - RIB FRACTURE [None]
  - PULMONARY GRANULOMA [None]
  - PRURITUS [None]
  - PANCREATITIS ACUTE [None]
  - RENAL FAILURE [None]
  - HYPOKALAEMIA [None]
  - PLEURAL EFFUSION [None]
  - PROTEINURIA [None]
  - CARDIOMEGALY [None]
  - SCOLIOSIS [None]
  - BULLOUS LUNG DISEASE [None]
  - NEPHRITIC SYNDROME [None]
  - NAUSEA [None]
  - MALAISE [None]
  - HYPOALBUMINAEMIA [None]
  - CHRONIC OBSTRUCTIVE PULMONARY DISEASE [None]
  - OSTEOPENIA [None]
  - ARTHRALGIA [None]
  - RENAL TUBULAR ACIDOSIS [None]
  - LEUKOCYTOSIS [None]
  - ACTINIC KERATOSIS [None]
  - LUNG NEOPLASM [None]
  - SPINAL OSTEOARTHRITIS [None]
  - SPINAL COMPRESSION FRACTURE [None]
  - RASH [None]
  - DIARRHOEA [None]
  - FATIGUE [None]
  - RENAL LIPOMATOSIS [None]
  - INFLUENZA [None]
  - DUODENAL POLYP [None]
  - DEEP VEIN THROMBOSIS [None]
  - PRESYNCOPE [None]
  - OSTEOARTHRITIS [None]
  - DECREASED APPETITE [None]
  - OEDEMA PERIPHERAL [None]
  - METASTASES TO BONE [None]
  - UPPER LIMB FRACTURE [None]
  - RENAL FAILURE CHRONIC [None]
  - HYPERTENSION [None]
  - ARTERIOSCLEROSIS [None]
  - HYPERCOAGULATION [None]
